FAERS Safety Report 6137042-4 (Version None)
Quarter: 2009Q1

REPORT INFORMATION
  Report Type: 
  Country: None (occurrence: None)
  Receive Date: 20090326
  Receipt Date: 20090312
  Transmission Date: 20090719
  Serious: Yes (Congenital Anomaly)
  Sender: FDA-Public Use
  Company Number: CHPA2009US07129

PATIENT
  Sex: 0

DRUGS (1)
  1. TERBINAFINE HCL [Suspect]
     Dosage: TRANSPLACENTAL
     Route: 064

REACTIONS (2)
  - CLEFT LIP [None]
  - MATERNAL DRUGS AFFECTING FOETUS [None]
